FAERS Safety Report 17291213 (Version 1)
Quarter: 2020Q1

REPORT INFORMATION
  Report Type: Spontaneous
  Country: US (occurrence: US)
  Receive Date: 20200121
  Receipt Date: 20200121
  Transmission Date: 20200409
  Serious: Yes (Hospitalization)
  Sender: FDA-Public Use
  Company Number: US-TEVA-2020-US-1171097

PATIENT
  Age: 72 Year
  Sex: Female

DRUGS (4)
  1. IMATINIB. [Suspect]
     Active Substance: IMATINIB MESYLATE
     Indication: GASTROINTESTINAL STROMAL TUMOUR
     Dosage: 400 MILLIGRAM DAILY; THEREAFTER DOUBLED
     Route: 065
  2. IMATINIB. [Suspect]
     Active Substance: IMATINIB MESYLATE
     Indication: METASTASES TO LIVER
     Dosage: 800 MILLIGRAM DAILY;
     Route: 065
  3. YTTRIUM-90 [Suspect]
     Active Substance: YTTRIUM CHLORIDE Y-90
     Indication: GASTROINTESTINAL STROMAL TUMOUR
     Dosage: RADIO-EMBOLISATION
     Route: 065
  4. YTTRIUM-90 [Suspect]
     Active Substance: YTTRIUM CHLORIDE Y-90
     Indication: METASTASES TO LIVER

REACTIONS (2)
  - Radiation pneumonitis [Recovering/Resolving]
  - Pneumonitis [Recovering/Resolving]
